FAERS Safety Report 11239403 (Version 1)
Quarter: 2015Q3

REPORT INFORMATION
  Report Type: Spontaneous
  Country: CN (occurrence: CN)
  Receive Date: 20150706
  Receipt Date: 20150706
  Transmission Date: 20151125
  Serious: Yes (Death, Hospitalization)
  Sender: FDA-Public Use
  Company Number: CN-BAYER-2015-294114

PATIENT
  Sex: Male

DRUGS (2)
  1. NEXAVAR [Suspect]
     Active Substance: SORAFENIB
     Indication: HEPATOCELLULAR CARCINOMA
     Dosage: 200 MG, BID
     Route: 048
     Dates: end: 201501
  2. NEXAVAR [Suspect]
     Active Substance: SORAFENIB
     Indication: HEPATOCELLULAR CARCINOMA
     Dosage: 400 MG, BID
     Route: 048
     Dates: start: 201409

REACTIONS (6)
  - Hepatic failure [Fatal]
  - Blood bilirubin increased [None]
  - Metastases to heart [None]
  - Rash [Recovered/Resolved]
  - Malignant pleural effusion [None]
  - Jaundice [None]

NARRATIVE: CASE EVENT DATE: 2014
